FAERS Safety Report 8461768-0 (Version None)
Quarter: 2012Q2

REPORT INFORMATION
  Report Type: 
  Country: None (occurrence: None)
  Receive Date: 20120618
  Receipt Date: 20120601
  Transmission Date: 20120825
  Serious: Yes (Other)
  Sender: FDA-Public Use
  Company Number: 2012MA006847

PATIENT
  Age: 72 Year
  Sex: Male

DRUGS (8)
  1. VERAPAMIL [Concomitant]
  2. METFORMIN HYDROCHLORIDE [Suspect]
     Indication: TYPE 2 DIABETES MELLITUS
     Dosage: 1700 MG;QD;PO
     Route: 048
  3. VILDAGLIPTIN (NO PREF. NAME) [Suspect]
     Indication: TYPE 2 DIABETES MELLITUS
     Dosage: 100 MG;QD;PO
     Route: 048
  4. SERENOA REPENS EXTRACT [Concomitant]
  5. ALFUZOSIN HCL [Concomitant]
  6. SIMVASTATIN [Concomitant]
  7. FUROSEMIDE [Concomitant]
  8. MONOXIDINE [Concomitant]

REACTIONS (1)
  - PEMPHIGOID [None]
